FAERS Safety Report 8377111-1 (Version None)
Quarter: 2012Q2

REPORT INFORMATION
  Report Type: 
  Country: None (occurrence: None)
  Receive Date: 20120518
  Receipt Date: 20120507
  Transmission Date: 20120825
  Serious: Yes (Other)
  Sender: FDA-Public Use
  Company Number: 2012P1024239

PATIENT
  Age: 32 Day
  Sex: Male

DRUGS (3)
  1. HEPARIN [Suspect]
     Indication: THROMBOSIS
     Dosage: 20-32 UNITS/KG/HR;
  2. PENTAVITE [Concomitant]
  3. PHOSPHATE [Concomitant]

REACTIONS (3)
  - FIBULA FRACTURE [None]
  - ULNA FRACTURE [None]
  - HUMERUS FRACTURE [None]
